FAERS Safety Report 4947954-2 (Version None)
Quarter: 2006Q1

REPORT INFORMATION
  Report Type: 
  Country: None (occurrence: None)
  Receive Date: 20060313
  Receipt Date: 20060224
  Transmission Date: 20060701
  Serious: Yes (Hospitalization)
  Sender: FDA-Public Use
  Company Number: 13595

PATIENT
  Age: 62 Year
  Sex: Female
  Weight: 70.7 kg

DRUGS (2)
  1. PACLITAXEL [Suspect]
     Indication: OVARIAN CANCER
     Dosage: 236 MG FREQ
     Dates: start: 20060208
  2. COZAAR [Concomitant]

REACTIONS (4)
  - BACK PAIN [None]
  - DYSPNOEA [None]
  - HYPOTENSION [None]
  - WHEEZING [None]
